FAERS Safety Report 8381402-8 (Version None)
Quarter: 2012Q2

REPORT INFORMATION
  Report Type: 
  Country: None (occurrence: None)
  Receive Date: 20120523
  Receipt Date: 20120515
  Transmission Date: 20120825
  Serious: Yes (Other)
  Sender: FDA-Public Use
  Company Number: US-ABBOTT-12P-163-0925447-00

PATIENT
  Sex: Female
  Weight: 50.394 kg

DRUGS (2)
  1. PREDNISONE [Concomitant]
     Indication: PRODUCT USED FOR UNKNOWN INDICATION
  2. HUMIRA [Suspect]
     Indication: CROHN'S DISEASE
     Dates: start: 20120113, end: 20120227

REACTIONS (7)
  - VOMITING [None]
  - MALAISE [None]
  - NAUSEA [None]
  - CROHN'S DISEASE [None]
  - INTESTINAL PERFORATION [None]
  - ABSCESS INTESTINAL [None]
  - ABDOMINAL PAIN UPPER [None]
